FAERS Safety Report 10276132 (Version 10)
Quarter: 2016Q1

REPORT INFORMATION
  Report Type: Report from Study
  Country: US (occurrence: US)
  Receive Date: 20140703
  Receipt Date: 20160329
  Transmission Date: 20160525
  Serious: Yes (Hospitalization, Other)
  Sender: FDA-Public Use
  Company Number: US-SA-2014SA083896

PATIENT
  Sex: Male

DRUGS (3)
  1. PREDNISONE. [Concomitant]
     Active Substance: PREDNISONE
     Dosage: PAST 4 MONTHS
  2. AUBAGIO [Suspect]
     Active Substance: TERIFLUNOMIDE
     Indication: MULTIPLE SCLEROSIS
     Route: 048
     Dates: start: 20140609
  3. AUBAGIO [Suspect]
     Active Substance: TERIFLUNOMIDE
     Indication: MULTIPLE SCLEROSIS
     Route: 048

REACTIONS (20)
  - Hydronephrosis [Unknown]
  - Diabetes mellitus [Unknown]
  - Wheelchair user [Unknown]
  - Hypoaesthesia [Unknown]
  - Depression [Unknown]
  - Memory impairment [Unknown]
  - Condition aggravated [Not Recovered/Not Resolved]
  - Blood glucose increased [Unknown]
  - Multiple sclerosis relapse [Unknown]
  - Hypokinesia [Not Recovered/Not Resolved]
  - Anger [Unknown]
  - Frustration tolerance decreased [Unknown]
  - Muscular weakness [Not Recovered/Not Resolved]
  - Asthenia [Unknown]
  - Bladder disorder [Unknown]
  - Cognitive disorder [Not Recovered/Not Resolved]
  - Pancreatic disorder [Unknown]
  - Unevaluable event [Unknown]
  - Drug dose omission [Unknown]
  - Fall [Unknown]
